FAERS Safety Report 19923932 (Version 1)
Quarter: 2021Q4

REPORT INFORMATION
  Report Type: Spontaneous
  Country: US (occurrence: US)
  Receive Date: 20211005
  Receipt Date: 20211005
  Transmission Date: 20220304
  Serious: No
  Sender: FDA-Public Use
  Company Number: None

PATIENT
  Sex: Female

DRUGS (3)
  1. RINVOQ [Suspect]
     Active Substance: UPADACITINIB
     Indication: Arthritis
     Dosage: OTHER DOSE:TAKE 1 TABLET;  AS DIRECTED
     Route: 048
  2. RINVOQ [Suspect]
     Active Substance: UPADACITINIB
     Indication: Bursitis
  3. RINVOQ [Suspect]
     Active Substance: UPADACITINIB
     Indication: Bursitis

REACTIONS (2)
  - Herpes zoster [None]
  - Immunosuppression [None]
